FAERS Safety Report 6013976-6 (Version None)
Quarter: 2008Q4

REPORT INFORMATION
  Report Type: 
  Country: None (occurrence: None)
  Receive Date: 20081219
  Receipt Date: 20081208
  Transmission Date: 20090506
  Serious: Yes (Other)
  Sender: FDA-Public Use
  Company Number: GB-PFIZER INC-2008099202

PATIENT

DRUGS (1)
  1. CHAMPIX [Suspect]
     Indication: SMOKING CESSATION THERAPY
     Dosage: 1 MG, 2X/DAY
     Route: 048
     Dates: start: 20081026, end: 20081117

REACTIONS (5)
  - ABNORMAL DREAMS [None]
  - AGITATION [None]
  - ANGER [None]
  - IRRITABILITY [None]
  - SLEEP DISORDER [None]
